FAERS Safety Report 23862712 (Version 1)
Quarter: 2024Q2

REPORT INFORMATION
  Report Type: Spontaneous
  Country: CA (occurrence: CA)
  Receive Date: 20240516
  Receipt Date: 20240516
  Transmission Date: 20240716
  Serious: Yes (Death, Other)
  Sender: FDA-Public Use
  Company Number: CA-PFIZER INC-PV202300096040

PATIENT
  Age: 51 Year
  Sex: Male
  Weight: 81 kg

DRUGS (7)
  1. INLYTA [Suspect]
     Active Substance: AXITINIB
     Indication: Metastatic renal cell carcinoma
     Dosage: 3 MG, BID (TWICE A DAY)
     Route: 048
  2. INLYTA [Suspect]
     Active Substance: AXITINIB
     Dosage: 5 MG
  3. INLYTA [Suspect]
     Active Substance: AXITINIB
     Dosage: 3 MG
     Dates: end: 202306
  4. INLYTA [Suspect]
     Active Substance: AXITINIB
     Dosage: 3 MG, 1 WEEK ON 1 WEEK OFF FOR A COUPLE OF WEEKS
     Route: 048
     Dates: start: 20230616
  5. INLYTA [Suspect]
     Active Substance: AXITINIB
     Dosage: 3 MG, 2X/DAY
     Route: 048
  6. KEYTRUDA [Concomitant]
     Active Substance: PEMBROLIZUMAB
     Dosage: UNK
  7. PEMBROLIZUMAB [Concomitant]
     Active Substance: PEMBROLIZUMAB
     Indication: Metastatic renal cell carcinoma
     Dosage: UNK
     Dates: start: 20230515

REACTIONS (4)
  - Death [Fatal]
  - Dyspnoea [Unknown]
  - Fatigue [Unknown]
  - Off label use [Unknown]

NARRATIVE: CASE EVENT DATE: 20230101
